FAERS Safety Report 15821662 (Version 1)
Quarter: 2019Q1

REPORT INFORMATION
  Report Type: Spontaneous
  Country: US (occurrence: US)
  Receive Date: 20190114
  Receipt Date: 20190114
  Transmission Date: 20190417
  Serious: Yes (Other)
  Sender: FDA-Public Use
  Company Number: US-LEITERS-2061161

PATIENT

DRUGS (1)
  1. MOXIFLOXACIN 5 MG/ML IN STERILE WATER FOR INJECTION, INTRAOCULAR INJEC [Suspect]
     Active Substance: MOXIFLOXACIN
     Indication: CATARACT OPERATION
     Route: 031
     Dates: start: 20181219, end: 20181219

REACTIONS (1)
  - Toxic anterior segment syndrome [Recovering/Resolving]

NARRATIVE: CASE EVENT DATE: 20181220
